FAERS Safety Report 9956498 (Version 1)
Quarter: 2014Q1

REPORT INFORMATION
  Report Type: Report from Study
  Country: US (occurrence: US)
  Receive Date: 20140304
  Receipt Date: 20140304
  Transmission Date: 20141002
  Serious: No
  Sender: FDA-Public Use
  Company Number: US-ABBVIE-13P-163-1100431-00

PATIENT
  Age: 56 Year
  Sex: Female

DRUGS (16)
  1. HUMIRA [Suspect]
     Indication: CROHN^S DISEASE
     Dates: start: 20130516
  2. LIALDA [Concomitant]
     Indication: CROHN^S DISEASE
  3. DICLOFENAC SODIUM [Concomitant]
     Indication: INFLAMMATION
  4. LOSARTAN [Concomitant]
     Indication: HYPERTENSION
     Dosage: 50 MG DAILY
  5. SINGULAIR [Concomitant]
     Indication: ASTHMA
     Dosage: 10 MG AT BED TIME
  6. ZYRTEC [Concomitant]
     Indication: HYPERSENSITIVITY
     Dosage: 10 MG DAILY
  7. ALLERGY SHOTS [Concomitant]
     Indication: HYPERSENSITIVITY
     Dosage: WEEKLY
  8. ALENDRONATE [Concomitant]
     Indication: OSTEOPOROSIS
  9. FLUTICASONE [Concomitant]
     Indication: PRODUCT USED FOR UNKNOWN INDICATION
     Dosage: DAILY
  10. ADVAIR [Concomitant]
     Indication: ASTHMA
     Dosage: INHALER 250/50 TWICE A DAY
  11. PROAIR [Concomitant]
     Indication: ASTHMA
     Dosage: AS NEEDED
  12. TYLENOL [Concomitant]
     Indication: ARTHRITIS
     Dosage: AS NEEDED WHEN RAINY
  13. CENTRUM SILVER [Concomitant]
     Indication: PRODUCT USED FOR UNKNOWN INDICATION
     Dosage: DAILY
  14. VITAMIN C [Concomitant]
     Indication: PRODUCT USED FOR UNKNOWN INDICATION
     Dosage: 500 MG DAILY
  15. CALCIUM [Concomitant]
     Indication: PRODUCT USED FOR UNKNOWN INDICATION
     Dosage: TWICE A DAY
  16. VITAMIN D [Concomitant]
     Indication: PRODUCT USED FOR UNKNOWN INDICATION

REACTIONS (2)
  - Pruritus [Not Recovered/Not Resolved]
  - Urticaria [Not Recovered/Not Resolved]
